FAERS Safety Report 7118421-5 (Version None)
Quarter: 2010Q4

REPORT INFORMATION
  Report Type: 
  Country: None (occurrence: None)
  Receive Date: 20101123
  Receipt Date: 20101112
  Transmission Date: 20110411
  Serious: Yes (Other)
  Sender: FDA-Public Use
  Company Number: JP-JNJFOC-20101000137

PATIENT
  Sex: Female

DRUGS (9)
  1. TOPIRAMATE [Suspect]
     Indication: HEADACHE
     Route: 048
  2. TOPIRAMATE [Suspect]
     Route: 048
  3. TOPIRAMATE [Suspect]
     Route: 048
  4. TOPIRAMATE [Suspect]
     Indication: MIGRAINE PROPHYLAXIS
     Route: 048
  5. TOPIRAMATE [Suspect]
     Route: 048
  6. TOPIRAMATE [Suspect]
     Route: 048
  7. AMITRIPTYLINE HCL [Concomitant]
     Route: 065
  8. TERNELIN [Concomitant]
     Route: 065
  9. CYANOCOBALAMIN [Concomitant]
     Dosage: 500 MCG
     Route: 065

REACTIONS (5)
  - DISTURBANCE IN ATTENTION [None]
  - DIZZINESS [None]
  - EXPRESSIVE LANGUAGE DISORDER [None]
  - JUDGEMENT IMPAIRED [None]
  - MENTAL IMPAIRMENT [None]
